FAERS Safety Report 7805884-2 (Version None)
Quarter: 2011Q4

REPORT INFORMATION
  Report Type: 
  Country: None (occurrence: None)
  Receive Date: 20111011
  Receipt Date: 20111006
  Transmission Date: 20120403
  Serious: No
  Sender: FDA-Public Use
  Company Number: US-BIOGENIDEC-2011BI038404

PATIENT
  Age: 39 Year
  Sex: Female

DRUGS (2)
  1. TYSABRI [Suspect]
     Indication: MULTIPLE SCLEROSIS
     Route: 042
     Dates: start: 20080922
  2. TYSABRI [Suspect]
     Route: 042
     Dates: start: 20071016, end: 20080313

REACTIONS (5)
  - FATIGUE [None]
  - VITAMIN B12 DEFICIENCY [None]
  - INFLAMMATION [None]
  - PARAESTHESIA [None]
  - HYPOAESTHESIA [None]
